FAERS Safety Report 15837905 (Version 1)
Quarter: 2019Q1

REPORT INFORMATION
  Report Type: Spontaneous
  Country: US (occurrence: US)
  Receive Date: 20190117
  Receipt Date: 20190117
  Transmission Date: 20190417
  Serious: Yes (Other)
  Sender: FDA-Public Use
  Company Number: US-SA-2018SA302810

PATIENT
  Age: 40 Year
  Sex: Female
  Weight: 104.23 kg

DRUGS (7)
  1. SYNTHROID [Concomitant]
     Active Substance: LEVOTHYROXINE SODIUM
     Dosage: 75 UG, QD
     Route: 048
     Dates: start: 20110705
  2. METFORMIN [Concomitant]
     Active Substance: METFORMIN HYDROCHLORIDE
     Dosage: 500 MG, QD
     Route: 048
     Dates: start: 20101210
  3. NORMAL SALINE [Concomitant]
     Active Substance: SODIUM CHLORIDE
     Dosage: 0.9 %, AS DIRECTED
     Route: 042
     Dates: start: 20180802
  4. CEREZYME [Suspect]
     Active Substance: IMIGLUCERASE
     Indication: FABRY^S DISEASE
     Dosage: 30.69 U/KG, QOW
     Route: 041
     Dates: start: 20101230
  5. EPINEPHRINE. [Concomitant]
     Active Substance: EPINEPHRINE
     Indication: ANAPHYLAXIS PROPHYLAXIS
     Dosage: 0.3 MG, AS DIRECTED
     Route: 030
     Dates: start: 20190110
  6. SODIUM CHLORIDE. [Concomitant]
     Active Substance: SODIUM CHLORIDE
     Dosage: 0.9 %, AS DIRECTED
     Route: 042
     Dates: start: 20190109
  7. STERILE WATER [Concomitant]
     Active Substance: WATER
     Dosage: 50 ML, AS DIRECTED
     Route: 065
     Dates: start: 20120803

REACTIONS (1)
  - Varicose vein operation [Unknown]

NARRATIVE: CASE EVENT DATE: 20181206
